FAERS Safety Report 12601349 (Version 1)
Quarter: 2016Q3

REPORT INFORMATION
  Report Type: Spontaneous
  Country: US (occurrence: None)
  Receive Date: 20160727
  Receipt Date: 20160727
  Transmission Date: 20161109
  Serious: Yes (Death)
  Sender: FDA-Public Use
  Company Number: None

PATIENT
  Age: 62 Year
  Sex: Female

DRUGS (1)
  1. SORAFENIB [Suspect]
     Active Substance: SORAFENIB
     Indication: NEOPLASM MALIGNANT
     Dosage: PRIOR TO ADMISSION -17-APR-2016
     Route: 048
     Dates: start: 20160417

REACTIONS (6)
  - Haematemesis [None]
  - Blood fibrinogen decreased [None]
  - Activated partial thromboplastin time prolonged [None]
  - International normalised ratio increased [None]
  - Prothrombin time prolonged [None]
  - Catheter site haemorrhage [None]

NARRATIVE: CASE EVENT DATE: 20160417
